FAERS Safety Report 15509691 (Version 2)
Quarter: 2018Q4

REPORT INFORMATION
  Report Type: Spontaneous
  Country: BR (occurrence: BR)
  Receive Date: 20181016
  Receipt Date: 20181211
  Transmission Date: 20190205
  Serious: Yes (Death, Other)
  Sender: FDA-Public Use
  Company Number: BR-SA-2018SA277117

PATIENT
  Age: 18 Month
  Sex: Male

DRUGS (5)
  1. CEFEPRIME [Concomitant]
     Dosage: 550 MG; FREQUENCY: EVERY 8 HOUR FOR 7 DAYS
     Route: 042
  2. LARONIDASE [Suspect]
     Active Substance: LARONIDASE
     Indication: MUCOPOLYSACCHARIDOSIS I
     Dosage: 2 DF, QW
     Route: 041
     Dates: start: 20180620, end: 20180926
  3. DIPHENHYDRAMINE. [Concomitant]
     Active Substance: DIPHENHYDRAMINE
     Indication: PROPHYLAXIS
     Route: 042
  4. MEROPENEM. [Concomitant]
     Active Substance: MEROPENEM
     Dosage: 222 MG, Q8H
     Route: 042
  5. PREDNISOLONE. [Concomitant]
     Active Substance: PREDNISOLONE
     Dosage: 3 MG/ML/60ML, QD
     Route: 048

REACTIONS (14)
  - Congenital tracheomalacia [Unknown]
  - Tracheal stenosis [Unknown]
  - Sepsis [Unknown]
  - Cyanosis [Unknown]
  - Septic shock [Fatal]
  - Tracheitis [Unknown]
  - Pyrexia [Unknown]
  - Tremor [Unknown]
  - Serratia test positive [Unknown]
  - Encephalitis [Fatal]
  - Increased bronchial secretion [Unknown]
  - Hyporesponsive to stimuli [Unknown]
  - Cardio-respiratory arrest [Fatal]
  - Hypothermia [Unknown]

NARRATIVE: CASE EVENT DATE: 201809
